FAERS Safety Report 10057193 (Version 1)
Quarter: 2014Q2

REPORT INFORMATION
  Report Type: Spontaneous
  Country: AU (occurrence: AU)
  Receive Date: 20140403
  Receipt Date: 20140403
  Transmission Date: 20141212
  Serious: Yes (Hospitalization)
  Sender: FDA-Public Use
  Company Number: AU-MYLANLABS-2014S1006940

PATIENT
  Age: 73 Year
  Sex: Female

DRUGS (9)
  1. ALENDRONIC ACID [Suspect]
     Dosage: 70MG WEEKLY
     Route: 065
  2. ESOMEPRAZOLE [Interacting]
     Route: 065
  3. FLECAINIDE [Concomitant]
     Route: 065
  4. CANDESARTAN CILEXETIL [Concomitant]
     Route: 065
  5. DOSULEPIN [Concomitant]
     Route: 065
  6. LERCANIDIPINE [Concomitant]
     Route: 065
  7. FOLIC ACID [Concomitant]
     Route: 065
  8. FUROSEMIDE [Concomitant]
     Route: 065
  9. WARFARIN [Concomitant]
     Route: 065

REACTIONS (2)
  - Femur fracture [Unknown]
  - Drug interaction [Unknown]
